FAERS Safety Report 6908727-4 (Version None)
Quarter: 2010Q3

REPORT INFORMATION
  Report Type: 
  Country: None (occurrence: None)
  Receive Date: 20100805
  Receipt Date: 20100727
  Transmission Date: 20110219
  Serious: Yes (Hospitalization)
  Sender: FDA-Public Use
  Company Number: A0834653A

PATIENT
  Age: 58 Year
  Sex: Male

DRUGS (2)
  1. AVANDIA [Suspect]
     Indication: DIABETES MELLITUS
     Dosage: 8MG TWICE PER DAY
     Route: 048
     Dates: start: 20030201, end: 20050401
  2. AVANDAMET [Suspect]
     Route: 048
     Dates: start: 20050401, end: 20081201

REACTIONS (3)
  - ANGIOPATHY [None]
  - CARDIAC DISORDER [None]
  - MYOCARDIAL INFARCTION [None]
